FAERS Safety Report 13291751 (Version 2)
Quarter: 2019Q3

REPORT INFORMATION
  Report Type: Spontaneous
  Country: US (occurrence: US)
  Receive Date: 20170303
  Receipt Date: 20190926
  Transmission Date: 20191004
  Serious: No
  Sender: FDA-Public Use
  Company Number: US-DEPOMED, INC.-US-2016DEP009819

PATIENT
  Sex: Male

DRUGS (8)
  1. XTANDI [Suspect]
     Active Substance: ENZALUTAMIDE
     Dosage: 40 MG, 1-3 TIMES WEEKLY
     Route: 048
  2. XTANDI [Suspect]
     Active Substance: ENZALUTAMIDE
     Dosage: 160 MG, QD
     Route: 065
  3. XTANDI [Suspect]
     Active Substance: ENZALUTAMIDE
     Dosage: 80 MG, QD
     Route: 048
  4. LUPRON [Concomitant]
     Active Substance: LEUPROLIDE ACETATE
     Indication: PRODUCT USED FOR UNKNOWN INDICATION
     Dosage: UNK
  5. GRALISE [Suspect]
     Active Substance: GABAPENTIN
     Indication: HERPES ZOSTER
     Dosage: UNK
  6. XTANDI [Suspect]
     Active Substance: ENZALUTAMIDE
     Indication: PROSTATE CANCER
     Dosage: 160 MG, QD
     Route: 048
  7. XTANDI [Suspect]
     Active Substance: ENZALUTAMIDE
     Dosage: 80 MG, QD
     Route: 048
  8. XTANDI [Suspect]
     Active Substance: ENZALUTAMIDE
     Dosage: 80 MG, QD
     Route: 048

REACTIONS (12)
  - Drug intolerance [Unknown]
  - Fatigue [Not Recovered/Not Resolved]
  - Nausea [Unknown]
  - Dizziness [Not Recovered/Not Resolved]
  - Gastrointestinal disorder [Unknown]
  - Drug hypersensitivity [Unknown]
  - Drug titration error [Unknown]
  - Prostatic specific antigen increased [Unknown]
  - Product use in unapproved indication [Unknown]
  - Altered state of consciousness [Recovered/Resolved]
  - Dysstasia [Recovering/Resolving]
  - Product dose omission [Unknown]
